FAERS Safety Report 8871343 (Version 2)
Quarter: 2013Q2

REPORT INFORMATION
  Report Type: Spontaneous
  Country: US (occurrence: None)
  Receive Date: 20120426
  Receipt Date: 20120703
  Transmission Date: 20140414
  Serious: Yes (Other)
  Sender: FDA-Public Use
  Company Number: PHEH2012US003424

PATIENT
  Age: 43 Year
  Sex: Female

DRUGS (20)
  1. GILENYA [Suspect]
     Indication: RELAPSING-REMITTING MULTIPLE SCLEROSIS
     Route: 048
     Dates: start: 20101215, end: 20111118
  2. GABAPENTIN(GABAPENTIN) [Concomitant]
  3. MIDRIN (DICHLORALPHENAZONE, ISOMETHEPTENE, PARACETAMOL) [Concomitant]
  4. FLUCONAZOLE (FLUCONAZOLE) [Concomitant]
  5. CIPRO (CIPROFLOXACIN HYDROCHLORIDE) [Concomitant]
  6. SUMATRIPTAN (SUMATRIPTAN) [Concomitant]
  7. MAXALT (RIZATRIPTAN) [Concomitant]
  8. REBIF (INTERFERON BETA-1A) [Concomitant]
  9. CITALOPRAM (CITALOPRAM) [Concomitant]
  10. TRAMADOL (TAMADOL) [Concomitant]
  11. DICLOFENAC (DICLOFENAC) [Concomitant]
  12. VITAMIN D3 (COLECALCIFEROL) [Concomitant]
  13. PREVACID (LANSOPRAZOLAM) [Concomitant]
  14. ALPRAZOLAM(ALPRAZOLAM) [Concomitant]
  15. NECON (ETHINYLESTRADIOL, NORTHISTERONE) [Concomitant]
  16. SINGULAIR [Concomitant]
  17. VITAMIN B12 (CYANOCOBALAMIN) [Concomitant]
  18. MAXAIR (PIRBUTEROL ACETATE) [Concomitant]
  19. EPIPEN (EPINEPHRINE) [Concomitant]
  20. XYZAL [Concomitant]

REACTIONS (4)
  - Multiple sclerosis relapse [None]
  - Drug ineffective [None]
  - Central nervous system lesion [None]
  - Demyelination [None]
